FAERS Safety Report 4301941-6 (Version None)
Quarter: 2004Q1

REPORT INFORMATION
  Report Type: 
  Country: None (occurrence: None)
  Receive Date: 20040220
  Receipt Date: 20040202
  Transmission Date: 20041129
  Serious: No
  Sender: FDA-Public Use
  Company Number: AE2004-0006

PATIENT
  Age: 27 Year
  Sex: Male

DRUGS (1)
  1. AQUATAB C (GUAIFENESIN, PHENYLPROPANOLAMINE HCL, DEXTROMETHORPHAN HBR) [Suspect]
     Dosage: TABLETS BID ORAL
     Route: 048

REACTIONS (3)
  - CEREBROVASCULAR ACCIDENT [None]
  - MEDICATION ERROR [None]
  - SELF-MEDICATION [None]
